FAERS Safety Report 5393890-X (Version None)
Quarter: 2007Q3

REPORT INFORMATION
  Report Type: 
  Country: None (occurrence: None)
  Receive Date: 20070723
  Receipt Date: 20070716
  Transmission Date: 20080115
  Serious: Yes (Other)
  Sender: FDA-Public Use
  Company Number: B0480090A

PATIENT
  Age: 45 Year
  Sex: Female

DRUGS (2)
  1. LAMIVUDINE [Suspect]
     Indication: HEPATITIS B VIRUS
     Route: 048
     Dates: start: 20070329, end: 20070524
  2. PEGASYS [Concomitant]
     Indication: HEPATITIS B
     Route: 058
     Dates: start: 20060910, end: 20070315

REACTIONS (3)
  - DEPRESSION [None]
  - INSOMNIA [None]
  - PRURITUS [None]
